FAERS Safety Report 5156889-4 (Version None)
Quarter: 2006Q3

REPORT INFORMATION
  Report Type: 
  Country: None (occurrence: None)
  Receive Date: 20060918
  Receipt Date: 20060531
  Transmission Date: 20061208
  Serious: Yes (Other)
  Sender: FDA-Public Use
  Company Number: US-JNJFOC-20060600235

PATIENT
  Age: 36 Year
  Sex: Male

DRUGS (1)
  1. TOPAMAX [Suspect]
     Indication: EPILEPSY
     Dosage: 150 MG, 2 IN 1 DAY, ORAL
     Route: 048

REACTIONS (2)
  - CONVULSION [None]
  - MEMORY IMPAIRMENT [None]
